FAERS Safety Report 5552382-5 (Version None)
Quarter: 2007Q4

REPORT INFORMATION
  Report Type: 
  Country: None (occurrence: None)
  Receive Date: 20071210
  Receipt Date: 20071128
  Transmission Date: 20080405
  Serious: Yes (Death, Other)
  Sender: FDA-Public Use
  Company Number: 2007-02442

PATIENT
  Age: 76 Year
  Sex: Female
  Weight: 54 kg

DRUGS (23)
  1. VELCADE [Suspect]
     Indication: MULTIPLE MYELOMA
     Dosage: 1.90 MG, INTRAVENOUS
     Route: 042
     Dates: start: 20070425, end: 20070515
  2. DEXAMETHASONE TAB [Suspect]
     Indication: MULTIPLE MYELOMA
     Dosage: 20.00 MG, INTRAVENOUS
     Route: 042
     Dates: start: 20070425, end: 20070515
  3. DEXAMETHASONE SODIUM PHOSPHATE [Suspect]
     Dosage: 20.00 MG
     Dates: start: 20070522, end: 20070808
  4. LASIX [Concomitant]
  5. PIPERACILLIN SODIUM AND TAZOBACTAM SODIUM [Concomitant]
  6. NORVASC [Concomitant]
  7. MUCOSTA                   (REBAMIPIDE) [Concomitant]
  8. LANSOPRAZOLE [Concomitant]
  9. RIZE                      (CLOTIAZEPAM) [Concomitant]
  10. LENDORM [Concomitant]
  11. BEZATOL - SLOW RELEASE                 (BEZAFIBRATE) [Concomitant]
  12. OPALMON                  (LIMAPROST) [Concomitant]
  13. DOGMATYL                   (SULPIRIDE) [Concomitant]
  14. PURSENNID                 (SENNA LEAF) [Concomitant]
  15. OXYCONTIN [Concomitant]
  16. MORPHINE [Concomitant]
  17. RISPERDAL [Concomitant]
  18. HEP-FLUSH                   (HEPARIN SODIUM) [Concomitant]
  19. PRIMPERAN TAB [Concomitant]
  20. VITAMINS NOS             (VITAMINS NOS) [Concomitant]
  21. NEUROTROPIN              (ORGAN LYSATE, STANDARDIZED) [Concomitant]
  22. METHYCOBAL                 (MECOBALAMIN) [Concomitant]
  23. POTASSIUM CHLORIDE [Concomitant]

REACTIONS (10)
  - BLOOD LACTATE DEHYDROGENASE INCREASED [None]
  - C-REACTIVE PROTEIN INCREASED [None]
  - DEEP VEIN THROMBOSIS [None]
  - DISEASE PROGRESSION [None]
  - NEUROPATHY PERIPHERAL [None]
  - NEUTROPHIL COUNT DECREASED [None]
  - PLATELET COUNT DECREASED [None]
  - PULMONARY EMBOLISM [None]
  - PYREXIA [None]
  - TUMOUR LYSIS SYNDROME [None]
